FAERS Safety Report 12233844 (Version 2)
Quarter: 2016Q2

REPORT INFORMATION
  Report Type: Spontaneous
  Country: DE (occurrence: DE)
  Receive Date: 20160404
  Receipt Date: 20160408
  Transmission Date: 20160815
  Serious: Yes (Congenital Anomaly, Other)
  Sender: FDA-Public Use
  Company Number: DE-SUN PHARMACEUTICAL INDUSTRIES LTD-2016RR-114254

PATIENT
  Age: 1 Day
  Sex: Female
  Weight: 3.02 kg

DRUGS (5)
  1. ATOSIL [Suspect]
     Active Substance: PROMETHAZINE HYDROCHLORIDE
     Indication: ACUTE PSYCHOSIS
     Dosage: 50 MG, DAILY, IF REQUIRED, UNKNOWN HOW OFTEN, DOSAGE BETWEEN 50MG/DAY AND 30 MG/D
     Route: 064
  2. FLUANXOL [Suspect]
     Active Substance: FLUPENTIXOL
     Indication: ACUTE PSYCHOSIS
     Dosage: 2 MG, BID
     Route: 064
     Dates: start: 20150220, end: 20150720
  3. SERTRALINE [Suspect]
     Active Substance: SERTRALINE HYDROCHLORIDE
     Indication: ACUTE PSYCHOSIS
     Dosage: 100 MG, DAILY
     Route: 064
     Dates: start: 20150220, end: 20151004
  4. FEMIBION [Concomitant]
     Active Substance: VITAMINS
     Indication: PROPHYLAXIS OF NEURAL TUBE DEFECT
     Dosage: UNK
     Route: 064
     Dates: start: 20150413, end: 20151004
  5. CLOZAPINE. [Suspect]
     Active Substance: CLOZAPINE
     Indication: ACUTE PSYCHOSIS
     Dosage: 75 MG, DAILY
     Route: 064
     Dates: start: 20150721, end: 20151004

REACTIONS (2)
  - Respiratory disorder neonatal [Recovered/Resolved]
  - Talipes [Unknown]

NARRATIVE: CASE EVENT DATE: 20151004
